FAERS Safety Report 11965501 (Version 1)
Quarter: 2016Q1

REPORT INFORMATION
  Report Type: Spontaneous
  Country: US (occurrence: None)
  Receive Date: 20160125
  Receipt Date: 20160125
  Transmission Date: 20160526
  Serious: No
  Sender: FDA-Public Use
  Company Number: None

PATIENT
  Age: 21 Month
  Sex: Male

DRUGS (1)
  1. GENTAMICIN. [Suspect]
     Active Substance: GENTAMICIN
     Indication: CONJUNCTIVITIS
     Route: 047
     Dates: start: 20160120, end: 20160121

REACTIONS (1)
  - Eye swelling [None]

NARRATIVE: CASE EVENT DATE: 20160121
